FAERS Safety Report 20094397 (Version 1)
Quarter: 2021Q4

REPORT INFORMATION
  Report Type: Spontaneous
  Country: US (occurrence: US)
  Receive Date: 20211122
  Receipt Date: 20211122
  Transmission Date: 20220303
  Serious: Yes (Hospitalization, Other)
  Sender: FDA-Public Use
  Company Number: US-TEVA-2021-US-1973617

PATIENT
  Age: 21 Year
  Sex: Female

DRUGS (1)
  1. PROPRANOLOL HYDROCHLORIDE [Suspect]
     Active Substance: PROPRANOLOL HYDROCHLORIDE
     Route: 065
     Dates: start: 202110, end: 202110

REACTIONS (4)
  - Bacterial infection [Unknown]
  - Anaphylactic reaction [Unknown]
  - Swelling face [Recovered/Resolved]
  - Throat irritation [Unknown]
